FAERS Safety Report 9319510 (Version 15)
Quarter: 2014Q3

REPORT INFORMATION
  Report Type: Spontaneous
  Country: US (occurrence: US)
  Receive Date: 20130530
  Receipt Date: 20140902
  Transmission Date: 20150326
  Serious: Yes (Hospitalization)
  Sender: FDA-Public Use
  Company Number: US-GLAXOSMITHKLINE-A0993696A

PATIENT
  Age: 53 Year
  Sex: Male
  Weight: 82.7 kg

DRUGS (1)
  1. FLOLAN [Suspect]
     Active Substance: EPOPROSTENOL SODIUM
     Indication: PULMONARY ARTERIAL HYPERTENSION
     Dosage: 57.5NGKM CONTINUOUS
     Route: 042
     Dates: start: 20010424

REACTIONS (39)
  - Chills [Unknown]
  - Injection site vesicles [Unknown]
  - Hot flush [Unknown]
  - Flushing [Unknown]
  - Pyrexia [Unknown]
  - Catheter placement [Unknown]
  - Device breakage [Unknown]
  - Ligament sprain [Unknown]
  - Muscle strain [Unknown]
  - Pneumonia [Unknown]
  - Staphylococcal infection [Unknown]
  - Feeling hot [Unknown]
  - Central venous catheterisation [Unknown]
  - Therapy cessation [Unknown]
  - Infection [Unknown]
  - Back injury [Unknown]
  - Catheter removal [Unknown]
  - Surgery [Recovered/Resolved]
  - Malaise [Unknown]
  - Diarrhoea [Unknown]
  - Oxygen saturation decreased [Unknown]
  - Injection site haemorrhage [Unknown]
  - Discomfort [Unknown]
  - Sinusitis [Unknown]
  - Lower respiratory tract infection [Unknown]
  - Dyspnoea [Unknown]
  - Device infusion issue [Recovered/Resolved]
  - Device related infection [Unknown]
  - Abdominal distension [Unknown]
  - Upper respiratory tract infection [Recovered/Resolved]
  - Central venous catheter removal [Unknown]
  - Cough [Unknown]
  - Investigation [Recovered/Resolved]
  - Contusion [Not Recovered/Not Resolved]
  - Bacteraemia [Unknown]
  - Respiratory tract infection [Unknown]
  - Drug administration error [Unknown]
  - Hyperhidrosis [Unknown]
  - Abdominal discomfort [Unknown]

NARRATIVE: CASE EVENT DATE: 20131127
